FAERS Safety Report 24325792 (Version 1)
Quarter: 2024Q3

REPORT INFORMATION
  Report Type: Other
  Country: CA (occurrence: CA)
  Receive Date: 20240917
  Receipt Date: 20240917
  Transmission Date: 20241016
  Serious: Yes (Hospitalization)
  Sender: TOLMAR
  Company Number: CA-TOLMAR, INC.-24CA051957

PATIENT
  Sex: Male

DRUGS (8)
  1. ELIGARD [Suspect]
     Active Substance: LEUPROLIDE ACETATE
     Indication: Prostate cancer
     Dosage: 22.5 MILLIGRAM, Q 3 MONTH
     Route: 058
     Dates: start: 20191004
  2. ELIGARD [Suspect]
     Active Substance: LEUPROLIDE ACETATE
     Dosage: 22.5 MILLIGRAM, Q 3 MONTH
     Route: 058
     Dates: start: 20240818
  3. ELIGARD [Suspect]
     Active Substance: LEUPROLIDE ACETATE
     Indication: Prostate cancer
     Dosage: UNK
  4. RADIUM RA-223 DICHLORIDE [Suspect]
     Active Substance: RADIUM RA-223 DICHLORIDE
     Indication: Prostate cancer
     Dosage: UNK, EVERY 5 WEEKS
     Dates: start: 20240614
  5. RADIUM RA-223 DICHLORIDE [Suspect]
     Active Substance: RADIUM RA-223 DICHLORIDE
     Dosage: UNK, EVERY 5 WEEKS
     Dates: start: 20240726
  6. XTANDI [Concomitant]
     Active Substance: ENZALUTAMIDE
     Indication: Product used for unknown indication
  7. XGEVA [Concomitant]
     Active Substance: DENOSUMAB
     Indication: Product used for unknown indication
     Dosage: UNK
     Dates: start: 20240227
  8. UNSPECIFIED INGREDIENT [Concomitant]
     Active Substance: UNSPECIFIED INGREDIENT
     Indication: Diabetes mellitus

REACTIONS (4)
  - Hypophagia [Unknown]
  - Dehydration [Recovered/Resolved]
  - Vomiting [Recovered/Resolved]
  - Polyuria [Recovered/Resolved]

NARRATIVE: CASE EVENT DATE: 20240101
